FAERS Safety Report 5755739-2 (Version None)
Quarter: 2008Q2

REPORT INFORMATION
  Report Type: 
  Country: None (occurrence: None)
  Receive Date: 20080602
  Receipt Date: 20080521
  Transmission Date: 20081010
  Serious: Yes (Hospitalization, Other)
  Sender: FDA-Public Use
  Company Number: FR-RANBAXY-2007US-11176

PATIENT

DRUGS (1)
  1. MINOCYCLINE HYDROCHLORIDE [Suspect]
     Indication: ACNE
     Dosage: 100 MG, QD
     Route: 065
     Dates: start: 20050101

REACTIONS (21)
  - ACUTE RESPIRATORY DISTRESS SYNDROME [None]
  - AGGRESSION [None]
  - AGITATION [None]
  - AMYOTROPHY [None]
  - ASTHENIA [None]
  - DRUG RASH WITH EOSINOPHILIA AND SYSTEMIC SYMPTOMS [None]
  - DYSPNOEA AT REST [None]
  - DYSPNOEA EXERTIONAL [None]
  - EOSINOPHILIA [None]
  - ERYTHRODERMIC PSORIASIS [None]
  - FACE OEDEMA [None]
  - HEPATIC FAILURE [None]
  - HEPATOMEGALY [None]
  - HYPOXIA [None]
  - LYMPHADENOPATHY [None]
  - MONOCYTOSIS [None]
  - NEUROMYOPATHY [None]
  - PYREXIA [None]
  - RASH MACULO-PAPULAR [None]
  - RENAL FAILURE [None]
  - SPLENOMEGALY [None]
